FAERS Safety Report 14558872 (Version 1)
Quarter: 2018Q1

REPORT INFORMATION
  Report Type: Report from Study
  Country: CA (occurrence: CA)
  Receive Date: 20180221
  Receipt Date: 20180221
  Transmission Date: 20180509
  Serious: Yes (Other)
  Sender: FDA-Public Use
  Company Number: CA-JNJFOC-20180227718

PATIENT
  Age: 16 Year
  Sex: Male

DRUGS (2)
  1. REMICADE [Suspect]
     Active Substance: INFLIXIMAB
     Indication: UVEITIS
     Dosage: STRENGTH = 100 MG
     Route: 042
     Dates: start: 20180217
  2. REMICADE [Suspect]
     Active Substance: INFLIXIMAB
     Indication: UVEITIS
     Dosage: STRENGTH = 100 MG
     Route: 042

REACTIONS (3)
  - Retinal detachment [Recovered/Resolved]
  - Off label use [Unknown]
  - Product use in unapproved indication [Unknown]

NARRATIVE: CASE EVENT DATE: 20171213
